FAERS Safety Report 21046949 (Version 1)
Quarter: 2022Q3

REPORT INFORMATION
  Report Type: Spontaneous
  Country: TW (occurrence: TW)
  Receive Date: 20220706
  Receipt Date: 20220706
  Transmission Date: 20221027
  Serious: Yes (Other)
  Sender: FDA-Public Use
  Company Number: TW-PFIZER INC-202200921014

PATIENT

DRUGS (1)
  1. VINCRISTINE [Suspect]
     Active Substance: VINCRISTINE
     Dosage: UNK

REACTIONS (3)
  - Neuropathy peripheral [Unknown]
  - Motor dysfunction [Unknown]
  - Muscle atrophy [Unknown]
